FAERS Safety Report 11210661 (Version 1)
Quarter: 2015Q2

REPORT INFORMATION
  Report Type: Spontaneous
  Country: US (occurrence: US)
  Receive Date: 20150622
  Receipt Date: 20150622
  Transmission Date: 20150821
  Serious: No
  Sender: FDA-Public Use
  Company Number: US-SA-2014SA092455

PATIENT
  Age: 60 Year
  Sex: Female

DRUGS (2)
  1. HECTOROL [Suspect]
     Active Substance: DOXERCALCIFEROL
     Indication: HYPERPARATHYROIDISM
     Route: 042
     Dates: end: 20140509
  2. CALCITRIOL. [Concomitant]
     Active Substance: CALCITRIOL

REACTIONS (1)
  - Blood parathyroid hormone abnormal [Not Recovered/Not Resolved]
